FAERS Safety Report 7442626-7 (Version None)
Quarter: 2011Q2

REPORT INFORMATION
  Report Type: 
  Country: None (occurrence: None)
  Receive Date: 20110425
  Receipt Date: 20110425
  Transmission Date: 20111010
  Serious: Yes (Hospitalization)
  Sender: FDA-Public Use
  Company Number: None

PATIENT
  Sex: Female
  Weight: 81.3 kg

DRUGS (2)
  1. CISPLATIN [Suspect]
     Dosage: 140 MG
     Dates: end: 20110328
  2. PACLITAXEL [Suspect]
     Dosage: 367 MG
     Dates: end: 20110304

REACTIONS (5)
  - PERITONITIS [None]
  - CATHETER SITE ERYTHEMA [None]
  - ADHESION [None]
  - URINARY INCONTINENCE [None]
  - MEDICAL DEVICE COMPLICATION [None]
